FAERS Safety Report 8546895-1 (Version None)
Quarter: 2012Q3

REPORT INFORMATION
  Report Type: 
  Country: None (occurrence: None)
  Receive Date: 20120727
  Receipt Date: 20120117
  Transmission Date: 20120928
  Serious: No
  Sender: FDA-Public Use
  Company Number: US-ASTRAZENECA-2012SE03464

PATIENT
  Age: 37 Year
  Sex: Female
  Weight: 57.2 kg

DRUGS (7)
  1. GENERIC FORM OF VALIUM [Concomitant]
     Indication: ANXIETY
  2. SEROQUEL XR [Suspect]
     Indication: BIPOLAR DISORDER
     Route: 048
     Dates: start: 20070101
  3. SEROQUEL XR [Suspect]
     Indication: FLASHBACK
     Route: 048
     Dates: start: 20070101
  4. SEROQUEL XR [Suspect]
     Indication: SLEEP DISORDER
     Route: 048
     Dates: start: 20070101
  5. BENADRYL [Concomitant]
  6. GENERIC FORM OF VALIUM [Concomitant]
     Indication: STRESS
  7. CELEXA [Concomitant]

REACTIONS (9)
  - ROAD TRAFFIC ACCIDENT [None]
  - FOOD CRAVING [None]
  - WEIGHT INCREASED [None]
  - DRUG DOSE OMISSION [None]
  - MALAISE [None]
  - HYPERPHAGIA [None]
  - AFFECT LABILITY [None]
  - OFF LABEL USE [None]
  - OROPHARYNGEAL PAIN [None]
